FAERS Safety Report 17202396 (Version 1)
Quarter: 2019Q4

REPORT INFORMATION
  Report Type: Spontaneous
  Country: DE (occurrence: DE)
  Receive Date: 20191226
  Receipt Date: 20191226
  Transmission Date: 20200122
  Serious: Yes (Other)
  Sender: FDA-Public Use
  Company Number: DE-BAUSCH-BL-2019-066046

PATIENT
  Sex: Female
  Weight: 60 kg

DRUGS (7)
  1. MABTHERA [Suspect]
     Active Substance: RITUXIMAB
     Dosage: 2ND LINE THERAPY, ACCORDING TO DHOX-RITUXIMAB REGIMEN, 2 CYCLES
     Route: 065
     Dates: start: 201904, end: 201905
  2. MABTHERA [Suspect]
     Active Substance: RITUXIMAB
     Dosage: 5TH LINE THERAPY, ACCORDING TO R-CHOP REGIMEN
     Route: 065
     Dates: start: 201910, end: 201910
  3. CHOP [Suspect]
     Active Substance: CYCLOPHOSPHAMIDE\DOXORUBICIN\PREDNISONE\VINCRISTINE
     Indication: DIFFUSE LARGE B-CELL LYMPHOMA
     Dosage: 5TH LINE THERAPY, ACCORDING TO R-CHOP REGIMEN
     Route: 065
     Dates: start: 201910, end: 201910
  4. OXALIPLATIN. [Suspect]
     Active Substance: OXALIPLATIN
     Indication: DIFFUSE LARGE B-CELL LYMPHOMA
     Dosage: 2ND LINE THERAPY, ACCORDING TO DHOX-RITUXIMAB REGIMEN, 2 CYCLES
     Route: 065
     Dates: start: 201904, end: 201905
  5. CYTARABINE. [Suspect]
     Active Substance: CYTARABINE
     Indication: DIFFUSE LARGE B-CELL LYMPHOMA
     Dosage: 2ND LINE THERAPY, ACCORDING TO DHOX-RITUXIMAB REGIMEN, 2 CYCLES
     Route: 065
     Dates: start: 201904, end: 201905
  6. DEXAMETHASONE. [Suspect]
     Active Substance: DEXAMETHASONE
     Indication: DIFFUSE LARGE B-CELL LYMPHOMA
     Dosage: 2ND LINE THERAPY, ACCORDING TO DHOX-RITUXIMAB REGIMEN, 2 CYCLES
     Route: 065
     Dates: start: 201904, end: 201905
  7. MABTHERA [Suspect]
     Active Substance: RITUXIMAB
     Indication: DIFFUSE LARGE B-CELL LYMPHOMA
     Dosage: 1ST LINE THERAPY, ACCORDING TO GM-ALL REGIMEN, 6 CYCLES PLUS RITUXIMAB, 2 CYCLES
     Route: 065
     Dates: start: 201805, end: 201811

REACTIONS (1)
  - Pancytopenia [Unknown]
